FAERS Safety Report 25144459 (Version 1)
Quarter: 2025Q2

REPORT INFORMATION
  Report Type: Spontaneous
  Country: CA (occurrence: None)
  Receive Date: 20250401
  Receipt Date: 20250401
  Transmission Date: 20250717
  Serious: Yes (Death, Life-Threatening, Hospitalization, Other)
  Sender: ORION
  Company Number: CA-PFIZER INC-PV202500037104

PATIENT
  Age: 65 Year
  Sex: Female

DRUGS (2)
  1. METHOTREXATE [Suspect]
     Active Substance: METHOTREXATE
     Indication: Psoriasis
  2. FOLATE SODIUM [Concomitant]
     Active Substance: FOLATE SODIUM
     Indication: Vitamin supplementation

REACTIONS (6)
  - Accidental overdose [Fatal]
  - Inappropriate schedule of product administration [Fatal]
  - Epidermal necrosis [Fatal]
  - Cardiac dysfunction [Fatal]
  - Sepsis [Fatal]
  - Renal impairment [Fatal]
